FAERS Safety Report 5452900-1 (Version None)
Quarter: 2007Q3

REPORT INFORMATION
  Report Type: 
  Country: None (occurrence: None)
  Receive Date: 20070914
  Receipt Date: 20070911
  Transmission Date: 20080115
  Serious: Yes (Hospitalization)
  Sender: FDA-Public Use
  Company Number: B0481440A

PATIENT
  Age: 55 Year
  Sex: Male
  Weight: 82 kg

DRUGS (13)
  1. ARIXTRA [Suspect]
     Indication: THROMBOSIS PROPHYLAXIS
     Dosage: 2.5MG PER DAY
     Route: 058
     Dates: start: 20070623, end: 20070701
  2. LITHIUM CARBONATE [Concomitant]
     Indication: SCHIZOPHRENIA
     Dosage: 1800MG PER DAY
     Route: 048
  3. VEGETAMIN A [Concomitant]
     Indication: SCHIZOPHRENIA
     Route: 048
  4. NEULEPTIL [Concomitant]
     Indication: SCHIZOPHRENIA
     Dosage: .5G PER DAY
     Route: 048
  5. PROMETHAZINE [Concomitant]
     Indication: SCHIZOPHRENIA
     Dosage: .25G PER DAY
     Route: 048
  6. RISPERDAL [Concomitant]
     Indication: SCHIZOPHRENIA
     Dosage: 4MG PER DAY
     Route: 048
  7. PENTCILLIN [Concomitant]
     Indication: INFECTION
     Dosage: 4G PER DAY
     Route: 042
     Dates: start: 20070622, end: 20070629
  8. FERROMIA [Concomitant]
     Dosage: 200MG PER DAY
     Route: 048
     Dates: start: 20070626
  9. SULPERAZON [Concomitant]
     Dosage: 2G PER DAY
     Route: 042
     Dates: start: 20070630, end: 20070703
  10. LEVOFLOXACIN [Concomitant]
     Dosage: 300MG PER DAY
     Route: 048
     Dates: start: 20070710, end: 20070719
  11. CEFZON [Concomitant]
     Dosage: 300MG PER DAY
     Route: 048
     Dates: start: 20070704, end: 20070709
  12. CEFAMEZIN [Concomitant]
     Dosage: 2G PER DAY
     Route: 042
     Dates: start: 20070720, end: 20070729
  13. PANSPORIN [Concomitant]
     Dosage: 2G PER DAY
     Route: 042
     Dates: start: 20070728

REACTIONS (7)
  - ANAEMIA [None]
  - C-REACTIVE PROTEIN INCREASED [None]
  - HAEMOGLOBIN DECREASED [None]
  - POST PROCEDURAL HAEMORRHAGE [None]
  - POSTOPERATIVE WOUND COMPLICATION [None]
  - POSTOPERATIVE WOUND INFECTION [None]
  - TRAUMATIC HAEMATOMA [None]
